FAERS Safety Report 4424025-5 (Version None)
Quarter: 2004Q3

REPORT INFORMATION
  Report Type: 
  Country: None (occurrence: None)
  Receive Date: 20040809
  Receipt Date: 20040727
  Transmission Date: 20050211
  Serious: Yes (Other)
  Sender: FDA-Public Use
  Company Number: 2004044272

PATIENT
  Age: 81 Year
  Sex: Male
  Weight: 74 kg

DRUGS (20)
  1. NEURONTIN [Suspect]
     Indication: EPILEPSY
     Dosage: 1800 MG (3 IN 1 D), ORAL
     Route: 048
     Dates: start: 20040406, end: 20040421
  2. PHENOBARBITAL SODIUM (PHENOBARBITAL SODIUM) [Suspect]
     Indication: EPILEPSY
     Dosage: 300 MG (2 IN 1 D), ORAL
     Route: 048
     Dates: start: 20040329
  3. CLONAZEPAM [Concomitant]
  4. VALPROATE SODUM (VALPROATE SODUM) [Concomitant]
  5. CEFTAZIDIME PENAHYDRATE (CEFTAZIDIME PENTAHYDRATE) [Concomitant]
  6. FOSFOMYCIN (FOSFOMYCIN) [Concomitant]
  7. HEPARIN-FRACTION, SODIUM SLAT (HEPARIN-FRACTION, SODIUM SALT) [Concomitant]
  8. SPIRONOLACTONE [Concomitant]
  9. FUROSEMIDE [Concomitant]
  10. AMLODIPINE BESYLATE [Concomitant]
  11. ATENOLOL [Concomitant]
  12. CEFOTAXIME SODIUM [Concomitant]
  13. TRAMADOL HCL [Concomitant]
  14. PEFLOXACIN MESILATE (PEFLOXACINMESILATE) [Concomitant]
  15. DOMPERIDONE (DOMPERIDONE) [Concomitant]
  16. METRONIDAZOLE [Concomitant]
  17. AMPHOTERICIN B [Concomitant]
  18. NYSTATIN [Concomitant]
  19. ACETAMINOPHEN [Concomitant]
  20. CLONAZEPAM [Concomitant]

REACTIONS (3)
  - CYTOLYTIC HEPATITIS [None]
  - DRUG INTERACTION [None]
  - PROTHROMBIN TIME PROLONGED [None]
